FAERS Safety Report 4564519-5 (Version None)
Quarter: 2005Q1

REPORT INFORMATION
  Report Type: 
  Country: None (occurrence: None)
  Receive Date: 20050128
  Receipt Date: 20050107
  Transmission Date: 20050727
  Serious: Yes (Life-Threatening, Hospitalization)
  Sender: FDA-Public Use
  Company Number: JP-MERCK-0501USA01036

PATIENT
  Age: 61 Year
  Sex: Female
  Weight: 48 kg

DRUGS (8)
  1. PRIMAXIN [Suspect]
     Indication: PNEUMONIA
     Route: 042
     Dates: start: 20050104, end: 20050104
  2. PRIMAXIN [Suspect]
     Route: 042
     Dates: start: 20041222, end: 20050103
  3. PRIMAXIN [Suspect]
     Route: 042
     Dates: start: 20050105, end: 20050105
  4. CIPROXAN [Concomitant]
     Route: 042
     Dates: start: 20041222, end: 20050105
  5. SOLU-MEDROL [Concomitant]
     Route: 042
     Dates: start: 20050102, end: 20050105
  6. AMINOPHYLLINE [Concomitant]
     Route: 042
     Dates: start: 20041222, end: 20050105
  7. NEORAL [Concomitant]
     Route: 048
     Dates: start: 20031001
  8. MICAFUNGIN SODIUM [Concomitant]
     Route: 042
     Dates: start: 20041222, end: 20050105

REACTIONS (3)
  - CONVULSION [None]
  - LOSS OF CONSCIOUSNESS [None]
  - MUSCULAR WEAKNESS [None]
